FAERS Safety Report 6839791-9 (Version None)
Quarter: 2010Q3

REPORT INFORMATION
  Report Type: 
  Country: None (occurrence: None)
  Receive Date: 20100714
  Receipt Date: 20100526
  Transmission Date: 20110219
  Serious: Yes (Hospitalization)
  Sender: FDA-Public Use
  Company Number: JP-BAYER-200910895BYL

PATIENT
  Age: 62 Year
  Sex: Male
  Weight: 47 kg

DRUGS (11)
  1. NEXAVAR [Suspect]
     Indication: RENAL CELL CARCINOMA
     Dosage: TOTAL DAILY DOSE: 800 MG  UNIT DOSE: 200 MG
     Route: 048
     Dates: start: 20090210, end: 20090222
  2. NEXAVAR [Suspect]
     Dosage: UNIT DOSE: 200 MG
     Route: 048
     Dates: start: 20090302
  3. NEXAVAR [Suspect]
     Dosage: UNIT DOSE: 200 MG
     Route: 048
     Dates: start: 20090406, end: 20090420
  4. NEXAVAR [Suspect]
     Dosage: UNIT DOSE: 200 MG
     Route: 048
     Dates: start: 20090317, end: 20090330
  5. SELBEX [Concomitant]
     Indication: PROPHYLAXIS
     Dosage: SINCE BEFORE ADMINISTRATION
     Route: 048
  6. HYPEN [Concomitant]
     Indication: TUMOUR ASSOCIATED FEVER
     Dosage: SINCE BEFORE ADMINISTRATION
     Route: 048
  7. ATELEC [Concomitant]
     Dosage: SINCE BEFORE ADMINISTRATION
     Route: 048
  8. BASEN OD [Concomitant]
     Dosage: SINCE BEFORE ADMINISTRATION
     Route: 048
  9. ORADOL [Concomitant]
     Indication: UPPER RESPIRATORY TRACT INFECTION
     Route: 049
     Dates: start: 20090223, end: 20090227
  10. CALONAL [Concomitant]
     Indication: PYREXIA
     Route: 048
     Dates: start: 20090223, end: 20090305
  11. FIRSTCIN [Concomitant]
     Indication: PYREXIA
     Route: 042
     Dates: start: 20090226, end: 20090228

REACTIONS (12)
  - ALANINE AMINOTRANSFERASE INCREASED [None]
  - ASPARTATE AMINOTRANSFERASE INCREASED [None]
  - BLOOD AMYLASE INCREASED [None]
  - DECREASED APPETITE [None]
  - HAEMOGLOBIN DECREASED [None]
  - MALAISE [None]
  - NEUTROPHIL COUNT DECREASED [None]
  - PALMAR-PLANTAR ERYTHRODYSAESTHESIA SYNDROME [None]
  - PLATELET COUNT DECREASED [None]
  - PYREXIA [None]
  - STOMATITIS [None]
  - WHITE BLOOD CELL COUNT DECREASED [None]
